FAERS Safety Report 5612078-8 (Version None)
Quarter: 2008Q1

REPORT INFORMATION
  Report Type: 
  Country: None (occurrence: None)
  Receive Date: 20080204
  Receipt Date: 20080125
  Transmission Date: 20080703
  Serious: Yes (Hospitalization)
  Sender: FDA-Public Use
  Company Number: PHEH2008US01221

PATIENT
  Age: 83 Year
  Sex: Female

DRUGS (17)
  1. RECLAST [Suspect]
     Indication: OSTEOPOROSIS
     Dosage: 5 MG, ONCE YEARLY
     Dates: start: 20080111
  2. OSCAL 500-D [Concomitant]
  3. ZEBETA [Concomitant]
  4. LOTENSIN [Concomitant]
  5. NORVASC [Concomitant]
  6. NORCO [Concomitant]
     Dosage: 5/325 MG, UNK
  7. VALIUM [Concomitant]
  8. TYLENOL [Concomitant]
  9. COLACE [Concomitant]
  10. SYNTHROID [Concomitant]
  11. NEURONTIN [Concomitant]
  12. LASIX [Concomitant]
  13. LACTULOSE [Concomitant]
  14. TIMOPTIC [Concomitant]
  15. K-DUR 10 [Concomitant]
  16. AMBIEN [Concomitant]
  17. MILK OF MAGNESIA [Concomitant]

REACTIONS (6)
  - ASTHENIA [None]
  - BLOOD CREATININE INCREASED [None]
  - DYSPNOEA [None]
  - PNEUMONIA [None]
  - PYREXIA [None]
  - WHITE BLOOD CELL COUNT INCREASED [None]
